FAERS Safety Report 8362146-5 (Version None)
Quarter: 2012Q2

REPORT INFORMATION
  Report Type: 
  Country: None (occurrence: None)
  Receive Date: 20120515
  Receipt Date: 20120507
  Transmission Date: 20120825
  Serious: Yes (Other)
  Sender: FDA-Public Use
  Company Number: GB-TEVA-337033ISR

PATIENT
  Age: 70 Year
  Sex: Male

DRUGS (2)
  1. CARBOPLATIN [Suspect]
     Indication: LUNG ADENOCARCINOMA METASTATIC
     Route: 065
  2. GEMCITABINE [Suspect]
     Indication: LUNG ADENOCARCINOMA METASTATIC
     Route: 065

REACTIONS (2)
  - PARANEOPLASTIC SYNDROME [None]
  - HISTIOCYTIC NECROTISING LYMPHADENITIS [None]
